FAERS Safety Report 5529490-8 (Version None)
Quarter: 2007Q4

REPORT INFORMATION
  Report Type: 
  Country: None (occurrence: None)
  Receive Date: 20071129
  Receipt Date: 20070305
  Transmission Date: 20080405
  Serious: No
  Sender: FDA-Public Use
  Company Number: A0624227A

PATIENT
  Age: 25 Year
  Sex: Female

DRUGS (3)
  1. WELLBUTRIN SR [Suspect]
     Indication: DEPRESSION
     Dosage: 150MG TWICE PER DAY
     Route: 048
  2. MICROGESTIN 1.5/30 [Concomitant]
  3. CLARITIN [Concomitant]

REACTIONS (3)
  - DYSPEPSIA [None]
  - FUNGAL OESOPHAGITIS [None]
  - ORAL FUNGAL INFECTION [None]
